FAERS Safety Report 11053971 (Version 1)
Quarter: 2015Q2

REPORT INFORMATION
  Report Type: Spontaneous
  Country: BR (occurrence: BR)
  Receive Date: 20150422
  Receipt Date: 20150422
  Transmission Date: 20150821
  Serious: Yes (Death)
  Sender: FDA-Public Use
  Company Number: BR-ROCHE-1566673

PATIENT
  Age: 57 Year

DRUGS (2)
  1. LUCENTIS [Suspect]
     Active Substance: RANIBIZUMAB
     Indication: MACULAR OEDEMA
     Route: 050
     Dates: start: 20140807, end: 20140807
  2. LUCENTIS [Suspect]
     Active Substance: RANIBIZUMAB
     Indication: VASCULAR OCCLUSION

REACTIONS (3)
  - Off label use [Unknown]
  - Infarction [Fatal]
  - Cerebrovascular accident [Fatal]

NARRATIVE: CASE EVENT DATE: 20140807
